FAERS Safety Report 9273892 (Version 3)
Quarter: 2013Q3

REPORT INFORMATION
  Report Type: Report from Study
  Country: JP (occurrence: JP)
  Receive Date: 20130506
  Receipt Date: 20130729
  Transmission Date: 20140515
  Serious: Yes (Other)
  Sender: FDA-Public Use
  Company Number: JP-AMGEN-JPNCT2013031029

PATIENT
  Age: 60 Year
  Sex: Female
  Weight: 73 kg

DRUGS (15)
  1. ETANERCEPT [Suspect]
     Indication: RHEUMATOID ARTHRITIS
     Dosage: 25 MG, QWK
     Route: 058
  2. LIPITOR [Suspect]
     Indication: DYSLIPIDAEMIA
     Dosage: UNK
     Route: 048
  3. CELECOX [Suspect]
     Indication: RHEUMATOID ARTHRITIS
     Dosage: 400 MG, QD
     Route: 048
  4. PROGRAF [Suspect]
     Indication: RHEUMATOID ARTHRITIS
     Dosage: 0.5 MG, 1X/DAY
     Route: 048
     Dates: start: 20120921, end: 20120927
  5. EXFORGE [Concomitant]
     Dosage: UNK
  6. POLYFUL [Concomitant]
     Dosage: UNK
     Route: 048
  7. BUSCOPAN [Concomitant]
     Dosage: UNK
  8. CEREKINON [Concomitant]
     Dosage: UNK
     Route: 048
  9. RIMATIL [Concomitant]
     Dosage: UNK
  10. PREDONINE                          /00016201/ [Concomitant]
     Dosage: UNK
  11. MARZULENE ES                       /00518301/ [Concomitant]
     Dosage: UNK
  12. PARIET [Concomitant]
     Dosage: UNK
  13. FLOMOX                             /01418603/ [Concomitant]
     Indication: CYSTITIS BACTERIAL
     Dosage: UNK
     Route: 048
     Dates: start: 20121001, end: 20121008
  14. CRAVIT [Concomitant]
     Indication: CYSTITIS BACTERIAL
     Dosage: UNK
     Dates: start: 20121009
  15. FOSMICIN                           /00552502/ [Concomitant]
     Indication: CYSTITIS BACTERIAL
     Dosage: UNK
     Route: 048

REACTIONS (4)
  - Dysuria [Unknown]
  - Intentional drug misuse [Unknown]
  - Micturition urgency [Unknown]
  - Cystitis escherichia [Recovering/Resolving]
